FAERS Safety Report 9275818 (Version 4)
Quarter: 2013Q3

REPORT INFORMATION
  Report Type: Spontaneous
  Country: IE (occurrence: IE)
  Receive Date: 20130507
  Receipt Date: 20130830
  Transmission Date: 20140515
  Serious: Yes (Death, Hospitalization)
  Sender: FDA-Public Use
  Company Number: IE-NOVOPROD-376710

PATIENT
  Age: 56 Year
  Sex: Male
  Weight: 109.6 kg

DRUGS (18)
  1. VICTOZA [Suspect]
     Indication: TYPE 2 DIABETES MELLITUS
     Dosage: 0.6 MG, QD
     Route: 065
     Dates: start: 20091105
  2. VICTOZA [Suspect]
     Dosage: 1.2 MG, QD
     Route: 065
  3. VICTOZA [Suspect]
     Dosage: 0.6 MG, QD
     Route: 065
  4. VICTOZA [Suspect]
     Dosage: 1.2 MG, QD
     Route: 065
     Dates: start: 20120419
  5. VICTOZA [Suspect]
     Dosage: 1.8 MG, QD
     Route: 065
  6. VICTOZA [Suspect]
     Dosage: 1.2 MG, QD
     Route: 065
     Dates: end: 20121112
  7. GLUCOPHAGE [Concomitant]
     Dosage: 850 MG, TID
     Route: 065
     Dates: start: 20070503, end: 20121113
  8. ZESTORETIC [Concomitant]
     Dosage: 20 MG, QD
     Route: 065
     Dates: start: 201003
  9. ZESTORETIC [Concomitant]
     Dosage: 12.5 MG, QD
     Route: 065
     Dates: start: 201003, end: 20121122
  10. LIPITOR [Concomitant]
     Dosage: 10 MG, QD
     Route: 065
     Dates: start: 20070503, end: 20121122
  11. MICARDIS PLUS [Concomitant]
     Dosage: UNK (80 MG)
     Route: 065
     Dates: start: 20080829, end: 20121122
  12. LANTUS [Concomitant]
     Dosage: UNK (150U)
     Route: 065
  13. LANTUS [Concomitant]
     Dosage: UNK (30U)
     Route: 065
     Dates: start: 2009
  14. LANTUS [Concomitant]
     Dosage: UNK
     Route: 065
     Dates: end: 20111020
  15. ZESTRIL [Concomitant]
  16. ISTIN [Concomitant]
     Dosage: 10 MG, QD
     Dates: start: 20070503
  17. METFORMIN [Concomitant]
     Dosage: 850 MG, QD
  18. ASPIRIN [Concomitant]
     Dosage: UNK
     Dates: end: 20121110

REACTIONS (2)
  - Gastrointestinal cancer metastatic [Fatal]
  - Renal failure acute [Unknown]
